FAERS Safety Report 4394370-0 (Version None)
Quarter: 2004Q3

REPORT INFORMATION
  Report Type: 
  Country: None (occurrence: None)
  Receive Date: 20040706
  Receipt Date: 20040622
  Transmission Date: 20050211
  Serious: Yes (Hospitalization)
  Sender: FDA-Public Use
  Company Number: 04P-163-0264541-00

PATIENT
  Sex: Female

DRUGS (3)
  1. TRICOR [Suspect]
     Dosage: 54 MG, 1 IN 1 D, PER ORAL
     Route: 048
     Dates: start: 20040329
  2. GLIMEPIRIDE [Concomitant]
  3. ACTOS [Concomitant]

REACTIONS (2)
  - BLOOD GLUCOSE DECREASED [None]
  - LOSS OF CONSCIOUSNESS [None]
